FAERS Safety Report 23667186 (Version 1)
Quarter: 2024Q1

REPORT INFORMATION
  Report Type: Spontaneous
  Country: US (occurrence: None)
  Receive Date: 20240325
  Receipt Date: 20240325
  Transmission Date: 20240410
  Serious: Yes (Hospitalization)
  Sender: FDA-Public Use
  Company Number: US-ROCHE-3528591

PATIENT
  Sex: Female

DRUGS (3)
  1. ACTEMRA [Suspect]
     Active Substance: TOCILIZUMAB
     Indication: Product used for unknown indication
     Route: 058
     Dates: start: 20220408
  2. ACTEMRA [Suspect]
     Active Substance: TOCILIZUMAB
  3. OXYTOCIN [Concomitant]
     Active Substance: OXYTOCIN

REACTIONS (2)
  - Headache [Unknown]
  - Mass [Unknown]
